FAERS Safety Report 4429550-9 (Version None)
Quarter: 2004Q3

REPORT INFORMATION
  Report Type: 
  Country: None (occurrence: None)
  Receive Date: 20040819
  Receipt Date: 20040727
  Transmission Date: 20050211
  Serious: Yes (Other)
  Sender: FDA-Public Use
  Company Number: AU-GLAXOSMITHKLINE-B0341199A

PATIENT
  Sex: Male
  Weight: 100 kg

DRUGS (10)
  1. ZOVIRAX [Suspect]
     Dosage: 800MG FIVE TIMES PER DAY
     Dates: start: 20040722
  2. ALODORM [Concomitant]
  3. RANITIDINE [Concomitant]
  4. RAMIPRIL [Concomitant]
  5. ZOLOFT [Concomitant]
  6. CODALGIN FORTE [Concomitant]
     Dosage: 2TAB FOUR TIMES PER DAY
  7. DIAFORMIN [Concomitant]
  8. ALLOPURINOL [Concomitant]
  9. FRUSEMIDE [Concomitant]
  10. POTASSIUM [Concomitant]

REACTIONS (7)
  - ARTHRALGIA [None]
  - BLISTER [None]
  - OEDEMA PERIPHERAL [None]
  - PHARYNGOLARYNGEAL PAIN [None]
  - PRURITUS [None]
  - RASH [None]
  - URTICARIA [None]
